FAERS Safety Report 19918750 (Version 5)
Quarter: 2022Q2

REPORT INFORMATION
  Report Type: Spontaneous
  Country: US (occurrence: US)
  Receive Date: 20211004
  Receipt Date: 20220609
  Transmission Date: 20220721
  Serious: Yes (Hospitalization, Other)
  Sender: FDA-Public Use
  Company Number: US-BIOGEN-2021BI01052288

PATIENT
  Age: 15 Year
  Sex: Female

DRUGS (3)
  1. SPINRAZA [Suspect]
     Active Substance: NUSINERSEN
     Indication: Spinal muscular atrophy
     Route: 065
  2. SPINRAZA [Suspect]
     Active Substance: NUSINERSEN
     Dosage: 4TH RE-LOADING DOSE
     Route: 065
     Dates: start: 20210915
  3. SPINRAZA [Suspect]
     Active Substance: NUSINERSEN
     Route: 065
     Dates: start: 20170426, end: 20220510

REACTIONS (9)
  - Muscle tightness [Not Recovered/Not Resolved]
  - Muscle spasms [Not Recovered/Not Resolved]
  - Sensory disturbance [Not Recovered/Not Resolved]
  - Back pain [Not Recovered/Not Resolved]
  - Hip deformity [Unknown]
  - Procedural pain [Unknown]
  - Post lumbar puncture syndrome [Recovered/Resolved]
  - Neuralgia [Not Recovered/Not Resolved]
  - Musculoskeletal procedural complication [Unknown]

NARRATIVE: CASE EVENT DATE: 20210916
